FAERS Safety Report 18904093 (Version 2)
Quarter: 2021Q2

REPORT INFORMATION
  Report Type: Spontaneous
  Country: CA (occurrence: CA)
  Receive Date: 20210217
  Receipt Date: 20210412
  Transmission Date: 20210717
  Serious: Yes (Other)
  Sender: FDA-Public Use
  Company Number: ALC2021CA001165

PATIENT

DRUGS (1)
  1. SYSTANE HYDRATION PF PRESERVATIVE FREE [Suspect]
     Active Substance: POLYETHYLENE GLYCOL 400\PROPYLENE GLYCOL
     Indication: PRODUCT USED FOR UNKNOWN INDICATION
     Dosage: UNK
     Route: 047

REACTIONS (3)
  - Eye irritation [Unknown]
  - Punctate keratitis [Unknown]
  - Eye pain [Unknown]
